FAERS Safety Report 23908083 (Version 2)
Quarter: 2024Q3

REPORT INFORMATION
  Report Type: Spontaneous
  Country: IN (occurrence: IN)
  Receive Date: 20240528
  Receipt Date: 20240730
  Transmission Date: 20241017
  Serious: No
  Sender: PFIZER
  Company Number: IN-PFIZER INC-PV202400000669

PATIENT
  Age: 57 Year
  Sex: Female

DRUGS (1)
  1. LORLATINIB [Suspect]
     Active Substance: LORLATINIB
     Indication: Lung neoplasm malignant
     Dosage: 100 MG, 1X/DAY
     Route: 048
     Dates: start: 20231028

REACTIONS (4)
  - Weight increased [Not Recovered/Not Resolved]
  - Blood pressure systolic increased [Recovered/Resolved]
  - Heart rate increased [Recovered/Resolved]
  - Respiratory rate increased [Not Recovered/Not Resolved]

NARRATIVE: CASE EVENT DATE: 20231227
